FAERS Safety Report 19092120 (Version 1)
Quarter: 2021Q2

REPORT INFORMATION
  Report Type: Spontaneous
  Country: US (occurrence: US)
  Receive Date: 20210403
  Receipt Date: 20210403
  Transmission Date: 20210717
  Serious: Yes (Hospitalization)
  Sender: FDA-Public Use
  Company Number: None

PATIENT
  Sex: Female
  Weight: 60 kg

DRUGS (6)
  1. DEXAMETHASONE. [Concomitant]
     Active Substance: DEXAMETHASONE
  2. METHOTREXATE. [Suspect]
     Active Substance: METHOTREXATE
  3. ONCASPAR [Suspect]
     Active Substance: PEGASPARGASE
  4. CYTARABINE. [Concomitant]
     Active Substance: CYTARABINE
  5. VINCRISTINE SULFATE. [Concomitant]
     Active Substance: VINCRISTINE SULFATE
  6. DAUNORUBICIN [Concomitant]
     Active Substance: DAUNORUBICIN

REACTIONS (6)
  - Headache [None]
  - Subdural haematoma [None]
  - Asthenia [None]
  - Coordination abnormal [None]
  - Generalised tonic-clonic seizure [None]
  - Confusional state [None]

NARRATIVE: CASE EVENT DATE: 20210402
